FAERS Safety Report 19473671 (Version 1)
Quarter: 2021Q2

REPORT INFORMATION
  Report Type: Report from Study
  Country: CA (occurrence: CA)
  Receive Date: 20210629
  Receipt Date: 20210629
  Transmission Date: 20210717
  Serious: Yes (Other)
  Sender: FDA-Public Use
  Company Number: CA-JNJFOC-20210514105

PATIENT
  Age: 62 Year
  Sex: Female

DRUGS (11)
  1. PANTOLOC [PANTOPRAZOLE SODIUM SESQUIHYDRATE] [Concomitant]
     Active Substance: PANTOPRAZOLE SODIUM
  2. EFFEXOR [Concomitant]
     Active Substance: VENLAFAXINE HYDROCHLORIDE
  3. OXYGEN. [Concomitant]
     Active Substance: OXYGEN
     Dosage: 7 LITERS 24/24
  4. VITAMIN D [ERGOCALCIFEROL] [Concomitant]
     Active Substance: ERGOCALCIFEROL
  5. SELEXIPAG [Suspect]
     Active Substance: SELEXIPAG
     Dosage: 400 MCG BID
     Route: 048
  6. MACITENTAN [Suspect]
     Active Substance: MACITENTAN
     Indication: PULMONARY HYPERTENSION
     Route: 048
     Dates: start: 201512
  7. LASIX [Concomitant]
     Active Substance: FUROSEMIDE
  8. ADCIRCA [Concomitant]
     Active Substance: TADALAFIL
     Indication: PULMONARY ARTERIAL HYPERTENSION
     Route: 048
     Dates: start: 20170307
  9. SELEXIPAG [Suspect]
     Active Substance: SELEXIPAG
     Indication: PULMONARY ARTERIAL HYPERTENSION
     Route: 048
     Dates: start: 20210503
  10. SELEXIPAG [Suspect]
     Active Substance: SELEXIPAG
     Route: 048
  11. SELEXIPAG [Suspect]
     Active Substance: SELEXIPAG
     Route: 048
     Dates: start: 20210607

REACTIONS (12)
  - Decreased appetite [Recovering/Resolving]
  - Abdominal distension [Not Recovered/Not Resolved]
  - Asthenia [Recovering/Resolving]
  - Pain [Recovered/Resolved]
  - Sensitive skin [Recovering/Resolving]
  - Diarrhoea [Recovered/Resolved]
  - Pain in jaw [Recovered/Resolved]
  - Myalgia [Recovering/Resolving]
  - Abdominal pain upper [Recovered/Resolved]
  - Headache [Recovered/Resolved]
  - Dyspnoea [Not Recovered/Not Resolved]
  - Bone pain [Recovering/Resolving]

NARRATIVE: CASE EVENT DATE: 20210503
